FAERS Safety Report 9938224 (Version 1)
Quarter: 2014Q1

REPORT INFORMATION
  Report Type: Report from Study
  Country: US (occurrence: US)
  Receive Date: 20140303
  Receipt Date: 20140303
  Transmission Date: 20141002
  Serious: No
  Sender: FDA-Public Use
  Company Number: US-ABBVIE-13P-163-1031252-00

PATIENT
  Age: 65 Year
  Sex: Female
  Weight: 87.62 kg

DRUGS (1)
  1. HUMIRA [Suspect]
     Indication: RHEUMATOID ARTHRITIS
     Dates: start: 20121113

REACTIONS (3)
  - Injection site erythema [Recovering/Resolving]
  - Increased tendency to bruise [Recovered/Resolved]
  - Sensory disturbance [Not Recovered/Not Resolved]
